FAERS Safety Report 20008344 (Version 2)
Quarter: 2022Q1

REPORT INFORMATION
  Report Type: Spontaneous
  Country: US (occurrence: None)
  Receive Date: 20211029
  Receipt Date: 20220128
  Transmission Date: 20220423
  Serious: No
  Sender: FDA-Public Use
  Company Number: US-ULTRAGENYX PHARMACEUTICAL INC.-US-UGNX-21-00311

PATIENT
  Age: 24 Year
  Sex: Female
  Weight: 61.8 kg

DRUGS (4)
  1. DOJOLVI [Suspect]
     Active Substance: TRIHEPTANOIN
     Indication: Carnitine palmitoyltransferase deficiency
     Route: 048
     Dates: start: 20210903, end: 20210906
  2. DOJOLVI [Suspect]
     Active Substance: TRIHEPTANOIN
     Route: 048
  3. DOJOLVI [Suspect]
     Active Substance: TRIHEPTANOIN
     Dosage: 1ML AS OFTEN AS PATIENT CAN REMEMBER
     Route: 048
  4. DOJOLVI [Suspect]
     Active Substance: TRIHEPTANOIN
     Dosage: 1ML 3-4 TIMES DAILY. INCREASES TO 2.5 ML WHEN MORE ACTIVE.
     Route: 048
     Dates: start: 20210924

REACTIONS (6)
  - Arthralgia [Recovered/Resolved]
  - Back pain [Unknown]
  - Myalgia [Unknown]
  - Abdominal pain upper [Unknown]
  - Vomiting [Recovered/Resolved]
  - Diarrhoea [Recovered/Resolved]

NARRATIVE: CASE EVENT DATE: 20210905
